FAERS Safety Report 8428126-6 (Version None)
Quarter: 2012Q2

REPORT INFORMATION
  Report Type: 
  Country: None (occurrence: None)
  Receive Date: 20120611
  Receipt Date: 20120417
  Transmission Date: 20120825
  Serious: Yes (Death, Other)
  Sender: FDA-Public Use
  Company Number: FR-BAYER-2012-052258

PATIENT
  Age: 83 Year
  Sex: Male

DRUGS (5)
  1. CIPROFLOXACIN [Suspect]
     Indication: CATARACT OPERATION
     Dosage: UNK
     Dates: start: 20111215, end: 20111219
  2. RITUXIMAB [Concomitant]
  3. LEVOFLOXACIN [Concomitant]
     Dosage: 1 DF, UNK
     Route: 048
     Dates: start: 20111219, end: 20111219
  4. CHLORAMBUCIL [Concomitant]
  5. ROMIPLOSTIM [Concomitant]

REACTIONS (8)
  - PURPURA [None]
  - MOUTH HAEMORRHAGE [None]
  - SHOCK HAEMORRHAGIC [None]
  - ANAEMIA HAEMOLYTIC AUTOIMMUNE [None]
  - GINGIVAL BLEEDING [None]
  - MELAENA [None]
  - GASTROINTESTINAL HAEMORRHAGE [None]
  - THROMBOCYTOPENIA [None]
